FAERS Safety Report 4965885-9 (Version None)
Quarter: 2006Q2

REPORT INFORMATION
  Report Type: 
  Country: None (occurrence: None)
  Receive Date: 20060406
  Receipt Date: 20060406
  Transmission Date: 20061013
  Serious: Yes (Death)
  Sender: FDA-Public Use
  Company Number: None

PATIENT
  Age: 45 Year
  Sex: Female
  Weight: 70.3075 kg

DRUGS (4)
  1. DEXTROAMPHETAMINE 15 MG DEXADRINE [Suspect]
     Dosage: 15 MG THREE TIMES DAILY PO
     Route: 048
     Dates: start: 20010102, end: 20060404
  2. DILTIAZEM HCL [Concomitant]
  3. FIORINAL W/CODEINE [Concomitant]
  4. XANAX [Concomitant]

REACTIONS (2)
  - BRAIN HERNIATION [None]
  - CEREBRAL HAEMORRHAGE [None]
